FAERS Safety Report 8776317 (Version 1)
Quarter: 2012Q4

REPORT INFORMATION
  Report Type: 
  Country: KR (occurrence: KR)
  Receive Date: 20120910
  Receipt Date: 20120910
  Transmission Date: 20130627
  Serious: Yes (Other)
  Sender: FDA-Public Use
  Company Number: KR-BAYER-2012-091307

PATIENT
  Sex: Female

DRUGS (3)
  1. YAZ [Suspect]
     Dosage: UNK
     Dates: start: 201208
  2. ANTIBIOTICS [Concomitant]
     Indication: UTERINE DILATION AND CURETTAGE
  3. ANALGESICS [Concomitant]
     Indication: UTERINE DILATION AND CURETTAGE

REACTIONS (6)
  - Haemorrhage [None]
  - Depression [None]
  - Feeling abnormal [None]
  - Crying [None]
  - Depressed mood [None]
  - Chest discomfort [None]
